FAERS Safety Report 14757188 (Version 1)
Quarter: 2018Q2

REPORT INFORMATION
  Report Type: Spontaneous
  Country: US (occurrence: US)
  Receive Date: 20180413
  Receipt Date: 20180413
  Transmission Date: 20180711
  Serious: No
  Sender: FDA-Public Use
  Company Number: US-BION-006636

PATIENT
  Sex: Male
  Weight: 104 kg

DRUGS (2)
  1. ALEVE [Suspect]
     Active Substance: NAPROXEN SODIUM
     Indication: PAIN
     Route: 048
  2. HYDROCODONE [Concomitant]
     Active Substance: HYDROCODONE

REACTIONS (3)
  - Incorrect drug administration duration [Not Recovered/Not Resolved]
  - Product physical consistency issue [Unknown]
  - Incorrect dosage administered [Not Recovered/Not Resolved]
